FAERS Safety Report 8535838 (Version 2)
Quarter: 2013Q4

REPORT INFORMATION
  Report Type: Spontaneous
  Country: US (occurrence: US)
  Receive Date: 20120430
  Receipt Date: 20131004
  Transmission Date: 20140711
  Serious: No
  Sender: FDA-Public Use
  Company Number: US-JNJFOC-20120410351

PATIENT
  Age: 42 Year
  Sex: Male

DRUGS (4)
  1. INVEGA SUSTENNA [Suspect]
     Indication: SCHIZOPHRENIA
     Route: 030
     Dates: start: 201202
  2. CELEXA [Concomitant]
     Route: 048
  3. KLONOPIN [Concomitant]
     Route: 048
  4. SIMVASTIN [Concomitant]
     Route: 048

REACTIONS (2)
  - Accidental exposure to product [Recovered/Resolved]
  - Syringe issue [Recovered/Resolved]
